FAERS Safety Report 18684207 (Version 1)
Quarter: 2020Q4

REPORT INFORMATION
  Report Type: Spontaneous
  Country: US (occurrence: US)
  Receive Date: 20201230
  Receipt Date: 20201230
  Transmission Date: 20210114
  Serious: Yes (Hospitalization, Other)
  Sender: FDA-Public Use
  Company Number: US-SA-2020SA369446

PATIENT

DRUGS (1)
  1. TRIAMCINOLONE ACETONIDE. [Suspect]
     Active Substance: TRIAMCINOLONE ACETONIDE
     Indication: PYLORIC STENOSIS
     Dosage: 80 MG, 1X
     Route: 026

REACTIONS (4)
  - Condition aggravated [Unknown]
  - Nausea [Unknown]
  - Abdominal pain upper [Unknown]
  - Pyloric abscess [Unknown]
